FAERS Safety Report 4820564-3 (Version None)
Quarter: 2005Q4

REPORT INFORMATION
  Report Type: 
  Country: None (occurrence: None)
  Receive Date: 20051102
  Receipt Date: 20051102
  Transmission Date: 20060501
  Serious: Yes (Other)
  Sender: FDA-Public Use
  Company Number: None

PATIENT
  Age: 54 Year
  Sex: Male
  Weight: 101 kg

DRUGS (11)
  1. CITALOPRAM [Suspect]
     Indication: DEPRESSION
     Dosage: 40MG
     Dates: start: 20050831, end: 20050915
  2. IBU [Concomitant]
  3. APAP TAB [Concomitant]
  4. ENALAPRIL MALEATE [Concomitant]
  5. HALOPERIDOL [Concomitant]
  6. GUAIFENESIN [Concomitant]
  7. BENZTIOPINE [Concomitant]
  8. LORATADINE [Concomitant]
  9. DOCUSATE [Concomitant]
  10. BENZTROPINE MESYLATE [Concomitant]
  11. LORAZEPAM [Concomitant]

REACTIONS (5)
  - HEART RATE DECREASED [None]
  - HEPATIC FUNCTION ABNORMAL [None]
  - HYPERSOMNIA [None]
  - LIVER FUNCTION TEST ABNORMAL [None]
  - SLUGGISHNESS [None]
